FAERS Safety Report 12548565 (Version 2)
Quarter: 2016Q3

REPORT INFORMATION
  Report Type: Spontaneous
  Country: US (occurrence: US)
  Receive Date: 20160712
  Receipt Date: 20160809
  Transmission Date: 20161109
  Serious: No
  Sender: FDA-Public Use
  Company Number: US-B.I. PHARMACEUTICALS,INC./RIDGEFIELD-2016-BI-42356BP

PATIENT
  Sex: Male
  Weight: 68.04 kg

DRUGS (5)
  1. FLOMAX [Suspect]
     Active Substance: TAMSULOSIN HYDROCHLORIDE
     Indication: PRODUCT USED FOR UNKNOWN INDICATION
     Route: 065
  2. CIALIS [Concomitant]
     Active Substance: TADALAFIL
     Indication: BLADDER DISCOMFORT
     Route: 065
  3. VIAGRA [Concomitant]
     Active Substance: SILDENAFIL CITRATE
     Indication: URINARY RETENTION
     Dosage: 100 MG
     Route: 048
  4. VIAGRA [Concomitant]
     Active Substance: SILDENAFIL CITRATE
     Dosage: STRENGTGH: 100 MG
     Route: 048
  5. CIALIS [Concomitant]
     Active Substance: TADALAFIL
     Indication: CALCULUS PROSTATIC

REACTIONS (1)
  - Drug ineffective [Unknown]
